FAERS Safety Report 4431031-3 (Version None)
Quarter: 2004Q3

REPORT INFORMATION
  Report Type: 
  Country: None (occurrence: None)
  Receive Date: 20040824
  Receipt Date: 20040218
  Transmission Date: 20050211
  Serious: No
  Sender: FDA-Public Use
  Company Number: US-BRISTOL-MYERS SQUIBB COMPANY-12510384

PATIENT
  Age: 68 Year
  Sex: Male
  Weight: 102 kg

DRUGS (3)
  1. MEGACE [Suspect]
     Indication: PROSTATE CANCER
     Dosage: DURATION: 2+ YEARS; IN JUL-2003 OR AUG-2003 STARTED ON ORAL SOLUTION 40MG/ML TWICE DAILY.
     Route: 048
  2. PREVACID [Concomitant]
  3. ACIPHEX [Concomitant]

REACTIONS (1)
  - DIARRHOEA [None]
